FAERS Safety Report 4572990-8 (Version None)
Quarter: 2005Q1

REPORT INFORMATION
  Report Type: 
  Country: None (occurrence: None)
  Receive Date: 20050203
  Receipt Date: 20050120
  Transmission Date: 20050727
  Serious: Yes (Life-Threatening, Hospitalization)
  Sender: FDA-Public Use
  Company Number: 167-20785-05020019

PATIENT
  Age: 81 Year
  Sex: Male

DRUGS (8)
  1. THALIDOMIDE-PHARMION (THALIDOMIDE) (50 MILLIGRAM, CAPSULES) [Suspect]
     Indication: MULTIPLE MYELOMA
     Dosage: 50 MG DAILY ORAL
     Route: 048
     Dates: start: 20040610, end: 20040917
  2. DEXAMETHASONE [Concomitant]
  3. BACTRIM [Concomitant]
  4. ACYCLOVIR [Concomitant]
  5. FLUCONAZOLE [Concomitant]
  6. FOLIC ACID [Concomitant]
  7. ASPIRIN [Concomitant]
  8. LANSOPRAZOLE [Concomitant]

REACTIONS (3)
  - CARDIO-RESPIRATORY ARREST [None]
  - CIRCULATORY COLLAPSE [None]
  - MYOCARDIAL ISCHAEMIA [None]
